FAERS Safety Report 8765447 (Version 2)
Quarter: 2012Q4

REPORT INFORMATION
  Report Type: 
  Country: JP (occurrence: JP)
  Receive Date: 20120903
  Receipt Date: 20120918
  Transmission Date: 20130627
  Serious: No
  Sender: FDA-Public Use
  Company Number: JP-PFIZER INC-2012211728

PATIENT
  Sex: Female

DRUGS (2)
  1. ZITHROMAC SR [Suspect]
     Indication: CERVICITIS
     Dosage: SINGLE DOSE
     Route: 048
  2. XYZAL [Concomitant]
     Dosage: UNK
     Route: 048

REACTIONS (2)
  - Feeling abnormal [Recovered/Resolved]
  - Somnolence [Recovered/Resolved]
